FAERS Safety Report 22284880 (Version 1)
Quarter: 2023Q2

REPORT INFORMATION
  Report Type: Spontaneous
  Country: US (occurrence: US)
  Receive Date: 20230504
  Receipt Date: 20230504
  Transmission Date: 20230721
  Serious: Yes (Hospitalization, Other)
  Sender: FDA-Public Use
  Company Number: US-MAYNE PHARMA-2023TMD00184

PATIENT
  Sex: Female
  Weight: 70.295 kg

DRUGS (5)
  1. BIJUVA [Suspect]
     Active Substance: ESTRADIOL\PROGESTERONE
     Indication: Hormone replacement therapy
     Dosage: 1 CAPSULE, 1X/DAY
     Route: 048
     Dates: start: 2022, end: 20230321
  2. BIJUVA [Suspect]
     Active Substance: ESTRADIOL\PROGESTERONE
     Indication: Hot flush
  3. BIJUVA [Suspect]
     Active Substance: ESTRADIOL\PROGESTERONE
     Indication: Emotional disorder
  4. TOPAMAX [Concomitant]
     Active Substance: TOPIRAMATE
  5. GABAPENTIN [Concomitant]
     Active Substance: GABAPENTIN

REACTIONS (3)
  - Nervous system cyst [Not Recovered/Not Resolved]
  - Migraine [Not Recovered/Not Resolved]
  - Menstrual disorder [Unknown]

NARRATIVE: CASE EVENT DATE: 20230101
